FAERS Safety Report 5154861-1 (Version None)
Quarter: 2006Q4

REPORT INFORMATION
  Report Type: 
  Country: None (occurrence: None)
  Receive Date: 20061121
  Receipt Date: 20061101
  Transmission Date: 20070319
  Serious: Yes (Hospitalization)
  Sender: FDA-Public Use
  Company Number: PHBS2006JP17184

PATIENT
  Age: 41 Year
  Sex: Female

DRUGS (3)
  1. TEGRETOL [Suspect]
     Indication: ATROPHY
     Dosage: 600 MG/DAY
     Route: 048
     Dates: start: 20050801, end: 20060317
  2. LOXONIN [Concomitant]
     Route: 048
  3. PRIMIDONE [Concomitant]
     Dates: start: 20050801, end: 20060101

REACTIONS (2)
  - BONE MARROW OEDEMA [None]
  - PAIN [None]
